FAERS Safety Report 6039000-7 (Version None)
Quarter: 2009Q1

REPORT INFORMATION
  Report Type: 
  Country: None (occurrence: None)
  Receive Date: 20090115
  Receipt Date: 20090105
  Transmission Date: 20090719
  Serious: Yes (Hospitalization)
  Sender: FDA-Public Use
  Company Number: FR-ELI_LILLY_AND_COMPANY-FR200812001860

PATIENT
  Sex: Female
  Weight: 56 kg

DRUGS (9)
  1. FORTEO [Suspect]
     Indication: OSTEOPOROSIS
     Dosage: 20 UG, DAILY (1/D)
     Route: 058
     Dates: start: 20071001
  2. FORTEO [Suspect]
     Dosage: UNK, UNKNOWN
     Route: 065
     Dates: start: 20080926
  3. SYNEDIL [Concomitant]
     Dosage: 50 MG, DAILY (1/D)
     Route: 065
  4. CALPEROS [Concomitant]
     Dosage: UNK, 3/D
     Route: 065
  5. INDAPAMIDE [Concomitant]
     Dosage: 1 D/F, DAILY (1/D)
     Route: 065
  6. PLAVIX [Concomitant]
     Dosage: 1 D/F, EACH EVENING
     Route: 065
  7. ZOCOR [Concomitant]
     Dosage: 40 MG, DAILY (1/D)
     Route: 065
  8. FORLAX [Concomitant]
     Dosage: 1 D/F, 3/D
     Route: 065
  9. VALIDEX [Concomitant]
     Dosage: 20 MG, 3/D
     Route: 065

REACTIONS (4)
  - BONE PAIN [None]
  - CATARACT [None]
  - DIABETES MELLITUS INADEQUATE CONTROL [None]
  - FALL [None]
